FAERS Safety Report 5407952-1 (Version None)
Quarter: 2007Q3

REPORT INFORMATION
  Report Type: 
  Country: None (occurrence: None)
  Receive Date: 20070807
  Receipt Date: 20070730
  Transmission Date: 20080115
  Serious: Yes (Hospitalization, Other)
  Sender: FDA-Public Use
  Company Number: US-ABBOTT-07P-163-0376031-00

PATIENT
  Sex: Female
  Weight: 74.002 kg

DRUGS (11)
  1. NIASPAN [Suspect]
     Indication: BLOOD CHOLESTEROL
     Route: 048
     Dates: start: 19870101, end: 20070718
  2. NIASPAN [Suspect]
     Dosage: (ORANGE TABS)
     Route: 048
     Dates: start: 20070719, end: 20070719
  3. NIASPAN [Suspect]
     Route: 048
     Dates: start: 20070720
  4. MONTELUKAST SODIUM [Concomitant]
     Indication: DRUG USE FOR UNKNOWN INDICATION
  5. AMITRIPTYLINE HCL [Concomitant]
     Indication: DRUG USE FOR UNKNOWN INDICATION
  6. ASPIRIN [Concomitant]
     Indication: DRUG USE FOR UNKNOWN INDICATION
  7. MULTIVITAMIN [Concomitant]
     Indication: DRUG USE FOR UNKNOWN INDICATION
  8. MINERALS NOS [Concomitant]
     Indication: DRUG USE FOR UNKNOWN INDICATION
  9. BYETTA NEEDLE [Concomitant]
     Indication: DIABETES MELLITUS
     Route: 050
  10. GLIMEPIRIDE [Concomitant]
     Indication: DIABETES MELLITUS
  11. MEDICINE [Concomitant]
     Indication: URINARY TRACT INFECTION

REACTIONS (3)
  - FEMUR FRACTURE [None]
  - FLUSHING [None]
  - PRURITUS GENERALISED [None]
